FAERS Safety Report 8908613 (Version 3)
Quarter: 2012Q4

REPORT INFORMATION
  Report Type: 
  Country: US (occurrence: US)
  Receive Date: 20121114
  Receipt Date: 20121214
  Transmission Date: 20130627
  Serious: Yes (Other)
  Sender: FDA-Public Use
  Company Number: US-TEVA-369562USA

PATIENT
  Age: 21 Year
  Sex: Female

DRUGS (1)
  1. CLARAVIS [Suspect]
     Indication: ACNE CYSTIC
     Dosage: 60 Milligram Daily;
     Route: 048
     Dates: start: 20120523, end: 2012

REACTIONS (1)
  - Unintended pregnancy [Recovered/Resolved]
